FAERS Safety Report 6751945-9 (Version None)
Quarter: 2010Q2

REPORT INFORMATION
  Report Type: 
  Country: None (occurrence: None)
  Receive Date: 20100602
  Receipt Date: 20100519
  Transmission Date: 20101027
  Serious: Yes (Hospitalization)
  Sender: FDA-Public Use
  Company Number: ES-ELI_LILLY_AND_COMPANY-ES201005005227

PATIENT
  Sex: Female
  Weight: 60 kg

DRUGS (5)
  1. FORTEO [Suspect]
     Indication: OSTEOPOROSIS
     Dosage: 20 UG, DAILY (1/D)
     Route: 058
     Dates: start: 20091201, end: 20100320
  2. LEVOTHYROXINE SODIUM [Concomitant]
     Indication: HYPOTHYROIDISM
     Dosage: 100 MG, DAILY (1/D)
     Route: 048
  3. SUTRIL [Concomitant]
     Indication: HYPERTENSION
     Dosage: UNK, 2/D
     Route: 048
  4. FORZAAR [Concomitant]
     Indication: HYPERTENSION
     Dosage: UNK, DAILY (1/D)
     Route: 048
  5. NORVASC [Concomitant]
     Indication: HYPERTENSION
     Dosage: UNK, DAILY (1/D)
     Route: 048

REACTIONS (2)
  - PANCREATITIS ACUTE [None]
  - WEIGHT DECREASED [None]
